FAERS Safety Report 14235956 (Version 5)
Quarter: 2019Q2

REPORT INFORMATION
  Report Type: Spontaneous
  Country: CA (occurrence: CA)
  Receive Date: 20171129
  Receipt Date: 20190409
  Transmission Date: 20190711
  Serious: Yes (Other)
  Sender: FDA-Public Use
  Company Number: CA-ORION CORPORATION ORION PHARMA-TREX2017-3888

PATIENT
  Age: 60 Year
  Sex: Female

DRUGS (13)
  1. METHOTREXATE (TRADE NAME UNKNOWN) [Suspect]
     Active Substance: METHOTREXATE
     Indication: RHEUMATOID ARTHRITIS
     Route: 065
  2. METHOTREXATE (TRADE NAME UNKNOWN) [Interacting]
     Active Substance: METHOTREXATE
     Route: 065
  3. ANAKINRA [Interacting]
     Active Substance: ANAKINRA
     Indication: RHEUMATOID ARTHRITIS
     Route: 065
  4. CELEBREX [Interacting]
     Active Substance: CELECOXIB
     Indication: ARTHRITIS
     Route: 065
  5. SULFASALAZINE. [Interacting]
     Active Substance: SULFASALAZINE
     Indication: RHEUMATOID ARTHRITIS
     Route: 065
  6. SULFASALAZINE. [Interacting]
     Active Substance: SULFASALAZINE
     Route: 065
     Dates: start: 2011
  7. APO-WARFARIN [Interacting]
     Active Substance: WARFARIN SODIUM
     Indication: THROMBOSIS PROPHYLAXIS
     Route: 065
  8. ENBREL [Interacting]
     Active Substance: ETANERCEPT
     Indication: RHEUMATOID ARTHRITIS
     Route: 065
     Dates: start: 20100520
  9. ENBREL [Interacting]
     Active Substance: ETANERCEPT
     Indication: PSORIATIC ARTHROPATHY
  10. PLAQUENIL [Interacting]
     Active Substance: HYDROXYCHLOROQUINE SULFATE
     Indication: RHEUMATOID ARTHRITIS
     Route: 065
  11. HUMIRA [Interacting]
     Active Substance: ADALIMUMAB
     Indication: RHEUMATOID ARTHRITIS
     Dosage: DISCONTINUED AFTER FOUR INJECTION
     Route: 065
  12. WARFARIN [Suspect]
     Active Substance: WARFARIN
     Indication: THROMBOSIS PROPHYLAXIS
     Route: 065
  13. ORENCIA [Interacting]
     Active Substance: ABATACEPT
     Indication: RHEUMATOID ARTHRITIS
     Route: 065
     Dates: end: 2012

REACTIONS (20)
  - Fine motor skill dysfunction [Unknown]
  - Embolism [Not Recovered/Not Resolved]
  - Hand deformity [Unknown]
  - Fear [Unknown]
  - Therapeutic product effect incomplete [Unknown]
  - Rash [Unknown]
  - Nausea [Unknown]
  - Finger deformity [Not Recovered/Not Resolved]
  - Swelling [Unknown]
  - Rheumatoid arthritis [Not Recovered/Not Resolved]
  - Deformity [Unknown]
  - Drug ineffective [Unknown]
  - Impaired healing [Unknown]
  - Condition aggravated [Unknown]
  - Musculoskeletal disorder [Unknown]
  - Pain [Unknown]
  - Disease progression [Unknown]
  - Diarrhoea [Unknown]
  - Arthropathy [Unknown]
  - Abdominal pain upper [Unknown]
